FAERS Safety Report 6092976-4 (Version None)
Quarter: 2009Q1

REPORT INFORMATION
  Report Type: 
  Country: None (occurrence: None)
  Receive Date: 20090224
  Receipt Date: 20090216
  Transmission Date: 20090719
  Serious: Yes (Other)
  Sender: FDA-Public Use
  Company Number: 180097

PATIENT
  Age: 33 Year
  Sex: Female
  Weight: 75 kg

DRUGS (2)
  1. SUFENTANIL CITRATE [Suspect]
     Indication: EPIDURAL ANAESTHESIA
     Dosage: 45 MCG, INTRATHECAL
     Route: 037
  2. BUPIVACAINE [Concomitant]

REACTIONS (7)
  - ACCIDENTAL OVERDOSE [None]
  - DRUG EXPOSURE DURING PREGNANCY [None]
  - DYSPHAGIA [None]
  - INCORRECT ROUTE OF DRUG ADMINISTRATION [None]
  - PERINEAL LACERATION [None]
  - PRURITUS [None]
  - VACUUM EXTRACTOR DELIVERY [None]
